FAERS Safety Report 5324133-0 (Version None)
Quarter: 2007Q2

REPORT INFORMATION
  Report Type: 
  Country: None (occurrence: None)
  Receive Date: 20070514
  Receipt Date: 20060926
  Transmission Date: 20071010
  Serious: No
  Sender: FDA-Public Use
  Company Number: A0621475A

PATIENT
  Sex: Female

DRUGS (6)
  1. NABUMETONE [Suspect]
     Indication: RHEUMATOID ARTHRITIS
     Dosage: 500MG THREE TIMES PER DAY
     Route: 048
     Dates: end: 20060925
  2. SYNTHROID [Concomitant]
  3. PREVACID [Concomitant]
  4. DIOVAN [Concomitant]
  5. LOTREL [Concomitant]
  6. ZETIA [Concomitant]

REACTIONS (5)
  - DYSPEPSIA [None]
  - HEADACHE [None]
  - NECK PAIN [None]
  - PRURITUS [None]
  - RASH [None]
